FAERS Safety Report 17918165 (Version 2)
Quarter: 2020Q3

REPORT INFORMATION
  Report Type: Spontaneous
  Country: GB (occurrence: GB)
  Receive Date: 20200619
  Receipt Date: 20200728
  Transmission Date: 20201103
  Serious: Yes (Life-Threatening, Disabling)
  Sender: FDA-Public Use
  Company Number: GB-JNJFOC-20200503718

PATIENT
  Age: 74 Year
  Sex: Female

DRUGS (2)
  1. RISPERDAL [Suspect]
     Active Substance: RISPERIDONE
     Indication: STRESS
  2. RISPERDAL [Suspect]
     Active Substance: RISPERIDONE
     Indication: EMOTIONAL DISTRESS
     Route: 065
     Dates: start: 2014, end: 2014

REACTIONS (5)
  - Rash [Recovered/Resolved]
  - Dizziness [Unknown]
  - Balance disorder [Unknown]
  - Urine analysis abnormal [Recovered/Resolved]
  - Abnormal weight gain [Unknown]
